FAERS Safety Report 22234898 (Version 1)
Quarter: 2023Q2

REPORT INFORMATION
  Report Type: Spontaneous
  Country: US (occurrence: None)
  Receive Date: 20230419
  Receipt Date: 20230419
  Transmission Date: 20230721
  Serious: Yes (Hospitalization)
  Sender: FDA-Public Use
  Company Number: None

PATIENT
  Age: 45 Year
  Sex: Male
  Weight: 90 kg

DRUGS (2)
  1. TIANEPTINE [Suspect]
     Active Substance: TIANEPTINE
     Indication: Pain
     Dosage: AS NEEDED ORAL?
     Route: 048
  2. TIANEPTINE [Suspect]
     Active Substance: TIANEPTINE
     Indication: Depression

REACTIONS (1)
  - Drug dependence [None]

NARRATIVE: CASE EVENT DATE: 20230418
